FAERS Safety Report 6403100-X (Version None)
Quarter: 2009Q4

REPORT INFORMATION
  Report Type: 
  Country: None (occurrence: None)
  Receive Date: 20091016
  Receipt Date: 20091005
  Transmission Date: 20100525
  Serious: Yes (Other)
  Sender: FDA-Public Use
  Company Number: PHHY2009JP26937

PATIENT
  Age: 58 Year
  Sex: Female

DRUGS (3)
  1. ZOMETA [Suspect]
     Indication: METASTASES TO BONE
     Dosage: UNK
     Dates: start: 20061101
  2. AREDIA [Suspect]
     Indication: METASTASES TO BONE
     Dosage: UNK
     Dates: start: 20030701, end: 20060101
  3. INCADRONIC ACID [Suspect]
     Dosage: UNK
     Dates: start: 20021001, end: 20030101

REACTIONS (3)
  - BONE DISORDER [None]
  - OSTEONECROSIS [None]
  - PARAESTHESIA ORAL [None]
